FAERS Safety Report 16677533 (Version 8)
Quarter: 2021Q1

REPORT INFORMATION
  Report Type: Spontaneous
  Country: US (occurrence: US)
  Receive Date: 20190807
  Receipt Date: 20210121
  Transmission Date: 20210419
  Serious: Yes (Hospitalization, Other)
  Sender: FDA-Public Use
  Company Number: US-PFIZER INC-2019335929

PATIENT
  Age: 67 Year
  Sex: Female

DRUGS (1)
  1. LYRICA [Suspect]
     Active Substance: PREGABALIN
     Indication: PAIN
     Dosage: 200 MG, 3X/DAY
     Route: 048

REACTIONS (11)
  - Malaise [Recovered/Resolved]
  - Thyroid function test abnormal [Recovered/Resolved]
  - Cerebral disorder [Unknown]
  - Neuropathy peripheral [Unknown]
  - Haemorrhage [Unknown]
  - Hernia [Unknown]
  - Back disorder [Unknown]
  - Neoplasm [Unknown]
  - COVID-19 [Unknown]
  - Illness [Unknown]
  - Breast cancer [Unknown]

NARRATIVE: CASE EVENT DATE: 202008
